FAERS Safety Report 25256987 (Version 3)
Quarter: 2025Q2

REPORT INFORMATION
  Report Type: Report from Study
  Country: DE (occurrence: DE)
  Receive Date: 20250430
  Receipt Date: 20250623
  Transmission Date: 20250716
  Serious: Yes (Hospitalization)
  Sender: MYLAN
  Company Number: DE-JNJFOC-20250418459

PATIENT
  Age: 63 Year
  Sex: Male
  Weight: 95 kg

DRUGS (9)
  1. METHOTREXATE [Suspect]
     Active Substance: METHOTREXATE
     Indication: Product used for unknown indication
     Dosage: 15 MILLIGRAM, QW (WEEKLY)
     Dates: start: 20230428, end: 20240311
  2. METHOTREXATE [Suspect]
     Active Substance: METHOTREXATE
     Indication: Product used for unknown indication
     Dosage: 15 MILLIGRAM, QW (WEEKLY)
     Dates: start: 20210622, end: 20230427
  3. TREMFYA [Suspect]
     Active Substance: GUSELKUMAB
     Indication: Product used for unknown indication
     Dosage: 100 MILLIGRAM, BIMONTHLY (8 WEEKS)
     Dates: start: 202302, end: 202309
  4. TREMFYA [Suspect]
     Active Substance: GUSELKUMAB
     Dosage: 100 MILLIGRAM, MONTHLY (4 WEEKS)
     Dates: start: 20231109, end: 20231209
  5. RAMIPRIL [Concomitant]
     Active Substance: RAMIPRIL
     Indication: Hypertension
     Dosage: 2.5 MILLIGRAM, QD (DAILY)
     Dates: start: 2021
  6. PANTOPRAZOLE [Concomitant]
     Active Substance: PANTOPRAZOLE
     Indication: Prophylaxis
     Dosage: 20 MILLIGRAM, QD (DAILY)
     Dates: start: 202210
  7. TAMSULOSIN [Concomitant]
     Active Substance: TAMSULOSIN
     Indication: Benign prostatic hyperplasia
     Dosage: 4 MILLIGRAM, QD (DAILY)
     Dates: start: 2022
  8. FOLIC ACID [Concomitant]
     Active Substance: FOLIC ACID
  9. NAPROXEN [Concomitant]
     Active Substance: NAPROXEN

REACTIONS (3)
  - Inguinal hernia [Recovered/Resolved]
  - Nasopharyngitis [Unknown]
  - Therapeutic product effect decreased [Unknown]

NARRATIVE: CASE EVENT DATE: 20221216
